FAERS Safety Report 15144028 (Version 1)
Quarter: 2018Q3

REPORT INFORMATION
  Report Type: Spontaneous
  Country: ES (occurrence: ES)
  Receive Date: 20180713
  Receipt Date: 20180713
  Transmission Date: 20181010
  Serious: Yes (Other)
  Sender: FDA-Public Use
  Company Number: ES-SHIRE-ES201825183

PATIENT

DRUGS (2)
  1. PIMOZIDA [Interacting]
     Active Substance: PIMOZIDE
     Indication: TIC
     Dosage: 2 MG, 1X/DAY:QD
     Route: 048
     Dates: start: 20180427
  2. 489 (LISDEXAMFETAMINE DIMESYLATE) [Suspect]
     Active Substance: LISDEXAMFETAMINE DIMESYLATE
     Indication: ATTENTION DEFICIT/HYPERACTIVITY DISORDER
     Dosage: 50 MG, 1X/DAY:QD
     Route: 048
     Dates: start: 20180514, end: 20180604

REACTIONS (2)
  - Akathisia [Unknown]
  - Gaze palsy [Unknown]

NARRATIVE: CASE EVENT DATE: 20180518
